FAERS Safety Report 19780352 (Version 1)
Quarter: 2021Q3

REPORT INFORMATION
  Report Type: Spontaneous
  Country: GB (occurrence: GB)
  Receive Date: 20210902
  Receipt Date: 20210902
  Transmission Date: 20211014
  Serious: Yes (Other)
  Sender: FDA-Public Use
  Company Number: GB-TEVA-2021-GB-1947212

PATIENT
  Age: 34 Year
  Sex: Female

DRUGS (1)
  1. FREMANEZUMAB [Suspect]
     Active Substance: FREMANEZUMAB
     Indication: MIGRAINE
     Dosage: 225 MG
     Route: 058
     Dates: start: 202106, end: 202108

REACTIONS (3)
  - Injection site necrosis [Not Recovered/Not Resolved]
  - Skin disorder [Unknown]
  - Injection site infection [Unknown]

NARRATIVE: CASE EVENT DATE: 202108
